FAERS Safety Report 19850629 (Version 1)
Quarter: 2021Q3

REPORT INFORMATION
  Report Type: Spontaneous
  Country: FR (occurrence: FR)
  Receive Date: 20210917
  Receipt Date: 20210917
  Transmission Date: 20211014
  Serious: Yes (Hospitalization, Other)
  Sender: FDA-Public Use
  Company Number: NVSC2021FR208253

PATIENT
  Age: 77 Year
  Sex: Female

DRUGS (8)
  1. TRAMADOL. [Suspect]
     Active Substance: TRAMADOL
     Indication: PAIN
     Dosage: 50 MG, PRN
     Route: 048
     Dates: start: 20210708, end: 20210805
  2. LASILIX [Suspect]
     Active Substance: FUROSEMIDE
     Indication: OEDEMA
     Dosage: 40 MG, QD
     Route: 048
     Dates: start: 202107
  3. FENTANYL. [Suspect]
     Active Substance: FENTANYL
     Indication: OEDEMA
     Dosage: 12 UG, QD
     Route: 062
     Dates: start: 20210730
  4. DEXAMETHASONE. [Suspect]
     Active Substance: DEXAMETHASONE
     Indication: PLASMA CELL MYELOMA
     Dosage: 9.5 MG, QD
     Route: 048
     Dates: start: 20210705, end: 20210818
  5. DARATUMUMAB [Suspect]
     Active Substance: DARATUMUMAB
     Indication: PLASMA CELL MYELOMA
     Dosage: 1800 MG, QW (10 AUG 2021)
     Route: 058
     Dates: start: 20210705
  6. BINOCRIT [Suspect]
     Active Substance: ERYTHROPOIETIN
     Indication: ANAEMIA
     Dosage: 1 DF, QW (20,000 IU / 0.5 ML SOLUTION FOR INJECTION IN PRE?FILLED SYRINGE)
     Route: 058
     Dates: start: 20210705, end: 20210805
  7. VALACICLOVIR [Suspect]
     Active Substance: VALACYCLOVIR HYDROCHLORIDE
     Indication: ANTI-INFECTIVE THERAPY
     Dosage: 1 G, QD
     Route: 048
     Dates: start: 20210717
  8. VELCADE [Suspect]
     Active Substance: BORTEZOMIB
     Indication: PLASMA CELL MYELOMA
     Dosage: 14 MG
     Route: 058
     Dates: start: 20210705, end: 20210810

REACTIONS (2)
  - Atrial fibrillation [Not Recovered/Not Resolved]
  - Ejection fraction decreased [Not Recovered/Not Resolved]

NARRATIVE: CASE EVENT DATE: 20210802
